FAERS Safety Report 4637553-4 (Version None)
Quarter: 2005Q1

REPORT INFORMATION
  Report Type: 
  Country: None (occurrence: None)
  Receive Date: 20050325
  Receipt Date: 20050107
  Transmission Date: 20050727
  Serious: No
  Sender: FDA-Public Use
  Company Number: USA041184489

PATIENT
  Age: 64 Year
  Sex: Female
  Weight: 49 kg

DRUGS (5)
  1. FORTEO [Suspect]
     Indication: OSTEOPOROSIS
     Dosage: 20 UG/ONCE DAY
     Dates: start: 20041118
  2. CHOLESTEROL [Concomitant]
  3. CALCIUM WITH VITAMIN D [Concomitant]
  4. SYNTHROID [Concomitant]
  5. KLONOPIN [Concomitant]

REACTIONS (7)
  - BODY HEIGHT DECREASED [None]
  - BONE PAIN [None]
  - INJECTION SITE ERYTHEMA [None]
  - INJECTION SITE RASH [None]
  - NAUSEA [None]
  - PAIN [None]
  - SENSATION OF HEAVINESS [None]
